FAERS Safety Report 6801612-8 (Version None)
Quarter: 2010Q2

REPORT INFORMATION
  Report Type: 
  Country: None (occurrence: None)
  Receive Date: 20100629
  Receipt Date: 20100521
  Transmission Date: 20101027
  Serious: Yes (Other)
  Sender: FDA-Public Use
  Company Number: US-MERCK-1005USA03356

PATIENT
  Age: 42 Year
  Sex: Female

DRUGS (1)
  1. SINGULAIR [Suspect]
     Indication: ASTHMA
     Route: 048

REACTIONS (7)
  - ARTHRALGIA [None]
  - DEPRESSION [None]
  - FATIGUE [None]
  - JOB DISSATISFACTION [None]
  - SELF ESTEEM DECREASED [None]
  - SUICIDAL IDEATION [None]
  - WEIGHT INCREASED [None]
